FAERS Safety Report 23311203 (Version 1)
Quarter: 2023Q4

REPORT INFORMATION
  Report Type: Spontaneous
  Country: US (occurrence: US)
  Receive Date: 20231219
  Receipt Date: 20231219
  Transmission Date: 20240110
  Serious: No
  Sender: FDA-Public Use
  Company Number: US-SA-SAC20231211001304

PATIENT
  Age: 77 Year
  Sex: Male

DRUGS (1)
  1. REZUROCK [Suspect]
     Active Substance: BELUMOSUDIL
     Dosage: 200 MG, QD
     Route: 048

REACTIONS (6)
  - Vision blurred [Unknown]
  - Pruritus [Unknown]
  - Hypoacusis [Unknown]
  - Dysphonia [Unknown]
  - Blood creatinine increased [Unknown]
  - Cough [Unknown]
